FAERS Safety Report 16877523 (Version 1)
Quarter: 2019Q4

REPORT INFORMATION
  Report Type: Spontaneous
  Country: US (occurrence: US)
  Receive Date: 20191002
  Receipt Date: 20191002
  Transmission Date: 20200122
  Serious: Yes (Other)
  Sender: FDA-Public Use
  Company Number: US-PFIZER INC-2015068319

PATIENT
  Age: 69 Year
  Sex: Male
  Weight: 83.91 kg

DRUGS (12)
  1. RAPAMUNE [Suspect]
     Active Substance: SIROLIMUS
     Dosage: 0.5 MG, ALTERNATE DAY (0.5 DAILY ALTERNATING WITH 1 MG DAILY)
     Route: 048
     Dates: start: 20190510
  2. RAPAMUNE [Suspect]
     Active Substance: SIROLIMUS
     Dosage: 1 MG, ALTERNATE DAY
     Route: 048
  3. RAPAMUNE [Suspect]
     Active Substance: SIROLIMUS
     Dosage: 1.5 MG, ALTERNATE DAY (1 MG DAILY ALTERNATING WITH 1.5 MG DAILY EVERY OTHER DAY)
     Route: 048
  4. RAPAMUNE [Suspect]
     Active Substance: SIROLIMUS
     Dosage: 1 MG, ALTERNATE DAY (0.5 MG DAILY ALTERNATING WITH 1 MG DAILY)
     Route: 048
  5. RAPAMUNE [Suspect]
     Active Substance: SIROLIMUS
     Dosage: 1 MG, DAILY
     Route: 048
  6. RAPAMUNE [Suspect]
     Active Substance: SIROLIMUS
     Dosage: 1 MG, ALTERNATE DAY (1 MG DAILY ALTERNATING WITH 1.5 MG DAILY EVERY OTHER DAY)
     Route: 048
  7. RAPAMUNE [Suspect]
     Active Substance: SIROLIMUS
     Indication: HEART TRANSPLANT
     Dosage: 0.5 MG, ALTERNATE DAY (0.5 MG DAILY ALTERNATING WITH 1 MG DAILY)
     Route: 048
  8. RAPAMUNE [Suspect]
     Active Substance: SIROLIMUS
     Dosage: 1 MG, ALTERNATE DAY (0.5 DAILY ALTERNATING WITH 1 MG DAILY)
     Route: 048
     Dates: start: 20190510
  9. RAPAMUNE [Suspect]
     Active Substance: SIROLIMUS
     Dosage: 1 MG, DAILY
  10. RAPAMUNE [Suspect]
     Active Substance: SIROLIMUS
     Dosage: 0.5 MG, ALTERNATE DAY
  11. RAPAMUNE [Suspect]
     Active Substance: SIROLIMUS
     Dosage: 1.5 MG, DAILY [1.0 TABLET AND 0.5 ALONG WITH IT TO EQUAL 1.5 EVERY DAY]
  12. CELLCEPT [Concomitant]
     Active Substance: MYCOPHENOLATE MOFETIL\MYCOPHENOLATE MOFETIL HYDROCHLORIDE
     Dosage: 1000 MG, 2X/DAY

REACTIONS (3)
  - Diabetes mellitus [Unknown]
  - Product use in unapproved indication [Unknown]
  - Off label use [Unknown]
